FAERS Safety Report 20963560 (Version 2)
Quarter: 2022Q2

REPORT INFORMATION
  Report Type: Spontaneous
  Country: FR (occurrence: FR)
  Receive Date: 20220615
  Receipt Date: 20220627
  Transmission Date: 20220721
  Serious: Yes (Life-Threatening, Hospitalization, Other)
  Sender: FDA-Public Use
  Company Number: FR-BRISTOL-MYERS SQUIBB COMPANY-BMS-2020-045322

PATIENT
  Age: 57 Year
  Sex: Male

DRUGS (6)
  1. APIXABAN [Suspect]
     Active Substance: APIXABAN
     Indication: Congestive cardiomyopathy
     Dosage: 5 MG, QD
     Route: 065
  2. APIXABAN [Suspect]
     Active Substance: APIXABAN
     Indication: Ventricular fibrillation
     Dosage: DOSAGE OF APIXABAN WAS REDUCED TO LIMIT INTERACTION
     Route: 065
  3. EVEROLIMUS [Suspect]
     Active Substance: EVEROLIMUS
     Indication: Liver transplant
     Route: 065
  4. EVEROLIMUS [Suspect]
     Active Substance: EVEROLIMUS
     Indication: Immunosuppressant drug therapy
  5. EPINEPHRINE [Suspect]
     Active Substance: EPINEPHRINE
     Indication: Shock haemorrhagic
     Route: 065
  6. PANTOPRAZOLE [Suspect]
     Active Substance: PANTOPRAZOLE
     Indication: Shock haemorrhagic
     Dosage: CONTINUOUS INFUSION
     Route: 050

REACTIONS (4)
  - Shock haemorrhagic [Not Recovered/Not Resolved]
  - Gastroduodenal haemorrhage [Recovered/Resolved]
  - Drug interaction [Unknown]
  - Intentional product use issue [Unknown]
